FAERS Safety Report 9209702 (Version 1)
Quarter: 2013Q2

REPORT INFORMATION
  Report Type: Spontaneous
  Country: CN (occurrence: CN)
  Receive Date: 20130404
  Receipt Date: 20130404
  Transmission Date: 20140414
  Serious: Yes (Other)
  Sender: FDA-Public Use
  Company Number: CN-JNJFOC-20130317674

PATIENT
  Sex: 0

DRUGS (2)
  1. HALOPERIDOL [Suspect]
     Indication: SCHIZOPHRENIA
     Dosage: EVERY 4-8 HOURS TO A MAXIMUM OF 20 MG/D
     Route: 030
  2. ESTAZOLAM [Concomitant]
     Route: 065

REACTIONS (4)
  - Self injurious behaviour [Unknown]
  - Extrapyramidal disorder [Unknown]
  - Rash [Unknown]
  - Adverse event [Unknown]
